FAERS Safety Report 4309887-4 (Version None)
Quarter: 2004Q1

REPORT INFORMATION
  Report Type: 
  Country: None (occurrence: None)
  Receive Date: 20040303
  Receipt Date: 20040115
  Transmission Date: 20041129
  Serious: No
  Sender: FDA-Public Use
  Company Number: US-BRISTOL-MYERS SQUIBB COMPANY-12479267

PATIENT
  Age: 26 Year
  Sex: Male
  Weight: 104 kg

DRUGS (3)
  1. ABILIFY [Suspect]
     Indication: CLOSED HEAD INJURY
     Route: 048
     Dates: start: 20040106
  2. ABILIFY [Suspect]
     Indication: PARANOIA
     Route: 048
     Dates: start: 20040106
  3. ABILIFY [Suspect]
     Indication: AFFECTIVE DISORDER
     Route: 048
     Dates: start: 20040106

REACTIONS (3)
  - INSOMNIA [None]
  - RESTLESSNESS [None]
  - WEIGHT DECREASED [None]
